FAERS Safety Report 4310820-X (Version None)
Quarter: 2004Q1

REPORT INFORMATION
  Report Type: 
  Country: None (occurrence: None)
  Receive Date: 20040302
  Receipt Date: 20040223
  Transmission Date: 20041129
  Serious: Yes (Hospitalization)
  Sender: FDA-Public Use
  Company Number: US-JNJFOC-20040205037

PATIENT
  Age: 49 Year
  Sex: Male
  Weight: 83.0083 kg

DRUGS (7)
  1. REMICADE [Suspect]
     Indication: RHEUMATOID ARTHRITIS
     Dosage: INTRAVENOUS
     Route: 042
     Dates: start: 20000719
  2. OXYCONTIN [Concomitant]
  3. OXYCODONE HCL [Concomitant]
  4. METHOTREXATE [Concomitant]
  5. LEUCOVORIN CALCIUM [Concomitant]
  6. CELEXA [Concomitant]
  7. FOLIC ACID [Concomitant]

REACTIONS (1)
  - RENAL ARTERY STENOSIS [None]
